FAERS Safety Report 20885413 (Version 1)
Quarter: 2022Q2

REPORT INFORMATION
  Report Type: Report from Study
  Country: IT (occurrence: IT)
  Receive Date: 20220527
  Receipt Date: 20220527
  Transmission Date: 20220721
  Serious: Yes (Hospitalization, Other)
  Sender: FDA-Public Use
  Company Number: None

PATIENT
  Age: 18 Year
  Sex: Male
  Weight: 72 kg

DRUGS (3)
  1. IFOSFAMIDE [Suspect]
     Active Substance: IFOSFAMIDE
     Indication: Ewing^s sarcoma
     Dosage: 5540 MG, QD
     Route: 040
     Dates: start: 20220224, end: 20220226
  2. VINCRISTINE [Suspect]
     Active Substance: VINCRISTINE
     Indication: Product used for unknown indication
     Dosage: 2 MG, CYCLICAL, ROUTE: INTRAVENOUS OTHERWISE NOT SPECIFIED
     Route: 050
     Dates: start: 20220204, end: 20220204
  3. ETOPOSIDE [Concomitant]
     Active Substance: ETOPOSIDE
     Indication: Ewing^s sarcoma
     Dosage: 277 MG
     Route: 040
     Dates: start: 20220224, end: 20220226

REACTIONS (4)
  - Proctalgia [Recovered/Resolved]
  - Haemorrhoids [Recovered/Resolved]
  - Anal fissure [Recovered/Resolved]
  - Febrile neutropenia [Recovered/Resolved]

NARRATIVE: CASE EVENT DATE: 20220309
